FAERS Safety Report 8389112-8 (Version None)
Quarter: 2012Q2

REPORT INFORMATION
  Report Type: 
  Country: None (occurrence: None)
  Receive Date: 20120528
  Receipt Date: 20120522
  Transmission Date: 20120825
  Serious: Yes (Life-Threatening, Other)
  Sender: FDA-Public Use
  Company Number: PHHY2011JP108681

PATIENT
  Age: 11 Year
  Sex: Male

DRUGS (12)
  1. CLADRIBINE [Suspect]
     Indication: XANTHOGRANULOMA
     Dosage: 3 MG/M2, UNK
     Route: 042
  2. CYCLOSPORINE [Suspect]
     Indication: XANTHOGRANULOMA
     Route: 048
  3. MELPHALAN [Concomitant]
     Dosage: 210 MG/M2, UNK
  4. CYCLOSPORINE [Suspect]
     Dosage: 3 MG/KG IN DIV DOSES
     Route: 048
  5. PREDNISOLONE [Concomitant]
  6. VINCRISTINE [Concomitant]
  7. FLUDARABINE PHOSPHATE [Concomitant]
     Dosage: 180 MG/M2, UNK
  8. CLADRIBINE [Suspect]
     Dosage: 5 MG/M2, UNK
     Route: 042
  9. CYCLOPHOSPHAMIDE [Concomitant]
  10. DOXORUBICIN HCL [Concomitant]
  11. ETOPOSIDE [Concomitant]
     Dosage: 300 MG/M2, UNK
  12. TACROLIMUS [Concomitant]
     Indication: PROPHYLAXIS AGAINST GRAFT VERSUS HOST DISEASE

REACTIONS (12)
  - XANTHOGRANULOMA [None]
  - THROMBOCYTOPENIA [None]
  - DISEASE RECURRENCE [None]
  - RENAL FAILURE [None]
  - NEUTROPHIL COUNT DECREASED [None]
  - BONE MARROW FAILURE [None]
  - LUNG DISORDER [None]
  - HERPES ZOSTER DISSEMINATED [None]
  - THERAPEUTIC RESPONSE DECREASED [None]
  - FEBRILE NEUTROPENIA [None]
  - NEUTROPENIA [None]
  - ANAEMIA [None]
